FAERS Safety Report 10153658 (Version 2)
Quarter: 2014Q4

REPORT INFORMATION
  Report Type: Report from Study
  Country: GB (occurrence: GB)
  Receive Date: 20140506
  Receipt Date: 20141212
  Transmission Date: 20150528
  Serious: Yes (Hospitalization)
  Sender: FDA-Public Use
  Company Number: GB-ROCHE-1395376

PATIENT
  Age: 85 Year
  Sex: Female

DRUGS (2)
  1. RANIBIZUMAB [Suspect]
     Active Substance: RANIBIZUMAB
     Indication: AGE-RELATED MACULAR DEGENERATION
     Dosage: 0.5 MG , PER 0.05 ML
     Route: 050
     Dates: start: 20120301
  2. RANIBIZUMAB [Suspect]
     Active Substance: RANIBIZUMAB
     Dosage: 0.5MG, PER 0.05ML
     Route: 050
     Dates: start: 20140106

REACTIONS (1)
  - Pulmonary embolism [Recovered/Resolved]

NARRATIVE: CASE EVENT DATE: 20140221
